FAERS Safety Report 6529588-1 (Version None)
Quarter: 2009Q4

REPORT INFORMATION
  Report Type: 
  Country: None (occurrence: None)
  Receive Date: 20091216
  Receipt Date: 20091202
  Transmission Date: 20100525
  Serious: Yes (Hospitalization, Other)
  Sender: FDA-Public Use
  Company Number: THYM-1001313

PATIENT
  Age: 38 Year
  Sex: Male

DRUGS (5)
  1. THYMOGLOBULIN [Suspect]
     Indication: RENAL AND PANCREAS TRANSPLANT
     Dosage: INTRAVENOUS
     Route: 042
  2. MYCOPHENOLATE MOFETIL [Suspect]
     Indication: RENAL AND PANCREAS TRANSPLANT
  3. PREDNISOLONE ACETATE [Suspect]
     Indication: RENAL AND PANCREAS TRANSPLANT
  4. PROGRAF [Suspect]
     Indication: RENAL AND PANCREAS TRANSPLANT
  5. INSULIN (INSULIN HUMAN) [Concomitant]

REACTIONS (9)
  - CARPAL TUNNEL SYNDROME [None]
  - LIGAMENT DISORDER [None]
  - MOTOR DYSFUNCTION [None]
  - NERVE COMPRESSION [None]
  - PAIN [None]
  - PAIN IN EXTREMITY [None]
  - SENSORY LOSS [None]
  - SWELLING [None]
  - SYSTEMIC INFLAMMATORY RESPONSE SYNDROME [None]
